FAERS Safety Report 7096453-3 (Version None)
Quarter: 2010Q4

REPORT INFORMATION
  Report Type: 
  Country: None (occurrence: None)
  Receive Date: 20101111
  Receipt Date: 20101029
  Transmission Date: 20110411
  Serious: No
  Sender: FDA-Public Use
  Company Number: US-JNJFOC-20101100828

PATIENT
  Sex: Female
  Weight: 77.11 kg

DRUGS (10)
  1. SANDOZ FENTANYL TRANSDERMAL SYSTEM [Suspect]
     Indication: FIBROMYALGIA
     Dosage: NDC# 0781-7240-55
     Route: 062
  2. NORVASC [Concomitant]
     Indication: HYPERTENSION
     Route: 048
  3. ATENOLOL [Concomitant]
     Indication: HYPERTENSION
     Route: 048
  4. TOPAMAX [Concomitant]
     Indication: FIBROMYALGIA
     Dosage: 2 TIMES A DAY
     Route: 048
  5. MILK THISTLE [Concomitant]
     Indication: NUTRITIONAL SUPPORT
     Route: 048
  6. COSAMIN ASU [Concomitant]
     Indication: NUTRITIONAL SUPPORT
     Route: 048
  7. VITAMIN B6 [Concomitant]
     Indication: NUTRITIONAL SUPPORT
     Route: 048
  8. VITAMIN B-12 [Concomitant]
     Indication: NEPHROLITHIASIS
     Route: 048
  9. MAGNESIUM [Concomitant]
     Indication: NEPHROLITHIASIS
     Route: 048
  10. THYROX [Concomitant]
     Indication: THYROID DISORDER
     Route: 048

REACTIONS (4)
  - APPLICATION SITE IRRITATION [None]
  - APPLICATION SITE REACTION [None]
  - PRODUCT QUALITY ISSUE [None]
  - WRONG TECHNIQUE IN DRUG USAGE PROCESS [None]
